FAERS Safety Report 17852455 (Version 10)
Quarter: 2023Q1

REPORT INFORMATION
  Report Type: Spontaneous
  Country: US (occurrence: US)
  Receive Date: 20200602
  Receipt Date: 20230120
  Transmission Date: 20230418
  Serious: Yes (Other)
  Sender: FDA-Public Use
  Company Number: US-PFIZER INC-2020215234

PATIENT
  Age: 66 Year
  Sex: Female

DRUGS (2)
  1. IBRANCE [Suspect]
     Active Substance: PALBOCICLIB
     Indication: Breast cancer female
     Dosage: 125 MG, CYCLIC (DAILY FOR 21 DAYS ON, 7 DAYS OFF ON A 28 DAY CYCLE)
  2. IBRANCE [Suspect]
     Active Substance: PALBOCICLIB
     Dosage: 100 MG

REACTIONS (25)
  - Poliomyelitis [Unknown]
  - Myalgia [Recovered/Resolved]
  - Leukopenia [Not Recovered/Not Resolved]
  - Neoplasm progression [Unknown]
  - Diarrhoea [Recovered/Resolved]
  - Hot flush [Not Recovered/Not Resolved]
  - Dizziness [Not Recovered/Not Resolved]
  - Dyspnoea [Unknown]
  - Fatigue [Not Recovered/Not Resolved]
  - Nausea [Recovering/Resolving]
  - Headache [Not Recovered/Not Resolved]
  - Abdominal discomfort [Unknown]
  - White blood cell count decreased [Unknown]
  - Pruritus [Unknown]
  - Tenderness [Unknown]
  - Procedural pain [Unknown]
  - Tremor [Recovering/Resolving]
  - Malaise [Recovering/Resolving]
  - Rash [Unknown]
  - Vertigo [Not Recovered/Not Resolved]
  - Disturbance in attention [Unknown]
  - Speech disorder [Unknown]
  - Head discomfort [Unknown]
  - Product dispensing error [Unknown]
  - Confusional state [Unknown]

NARRATIVE: CASE EVENT DATE: 20200101
